FAERS Safety Report 8336252-5 (Version None)
Quarter: 2012Q2

REPORT INFORMATION
  Report Type: 
  Country: None (occurrence: None)
  Receive Date: 20120504
  Receipt Date: 20120426
  Transmission Date: 20120825
  Serious: Yes (Other)
  Sender: FDA-Public Use
  Company Number: JP-VERTEX PHARMACEUTICALS INC.-AE-2012-006176

PATIENT
  Age: 34 Year
  Sex: Male

DRUGS (3)
  1. PEG-INTRON [Concomitant]
     Route: 051
     Dates: start: 20120413
  2. TELAVIC (TELAPREVIR) [Suspect]
     Route: 048
     Dates: start: 20120413
  3. REBETOL [Concomitant]
     Dates: start: 20120413

REACTIONS (1)
  - DRUG ERUPTION [None]
